FAERS Safety Report 9139493 (Version 1)
Quarter: 2013Q1

REPORT INFORMATION
  Report Type: Spontaneous
  Country: US (occurrence: None)
  Receive Date: 20130206
  Receipt Date: 20130206
  Transmission Date: 20140127
  Serious: Yes (Death)
  Sender: FDA-Public Use
  Company Number: NSR_00887_2013

PATIENT
  Age: 43 Year
  Sex: Female

DRUGS (6)
  1. VENLAFAXINE [Suspect]
     Indication: PRODUCT USED FOR UNKNOWN INDICATION
     Dosage: (DF)
  2. METHAMPHETAMINE [Suspect]
  3. FLUOXETINE [Suspect]
     Dosage: (DF)
  4. CITALOPRAM [Suspect]
     Indication: PRODUCT USED FOR UNKNOWN INDICATION
  5. DOXEPIN [Suspect]
     Indication: PRODUCT USED FOR UNKNOWN INDICATION
  6. MILNACIPRAN [Suspect]
     Indication: PRODUCT USED FOR UNKNOWN INDICATION

REACTIONS (2)
  - Poisoning [None]
  - Drug abuse [None]
